FAERS Safety Report 7760698 (Version 5)
Quarter: 2014Q1

REPORT INFORMATION
  Report Type: Spontaneous
  Country: US (occurrence: US)
  Receive Date: 20110114
  Receipt Date: 20140210
  Transmission Date: 20141002
  Serious: Yes (Hospitalization)
  Sender: FDA-Public Use
  Company Number: US-BAYER-2011-004036

PATIENT
  Age: 43 Year
  Sex: Female
  Weight: 87.08 kg

DRUGS (6)
  1. YAZ [Suspect]
     Dosage: UNK
     Dates: start: 20060814, end: 20071126
  2. YASMIN [Suspect]
  3. NAPROXEN [Concomitant]
     Indication: ARTHRALGIA
     Dosage: UNK
     Dates: start: 2002, end: 2007
  4. NAPROXEN [Concomitant]
     Indication: ARTHRITIS
  5. TYLENOL SINUS MEDICATION [Concomitant]
     Indication: HEADACHE
  6. ACETAMINOPHEN W/ASPIRIN/CAFFEINE [Concomitant]
     Indication: HEADACHE

REACTIONS (3)
  - Pulmonary embolism [Unknown]
  - Deep vein thrombosis [Unknown]
  - Thrombosis [Unknown]
